FAERS Safety Report 15351110 (Version 2)
Quarter: 2018Q3

REPORT INFORMATION
  Report Type: Spontaneous
  Country: US (occurrence: US)
  Receive Date: 20180905
  Receipt Date: 20180908
  Transmission Date: 20181010
  Serious: Yes (Death)
  Sender: FDA-Public Use
  Company Number: US-HORIZON-PRO-0180-2018

PATIENT
  Age: 40 Year
  Sex: Female

DRUGS (1)
  1. PROCYSBI [Suspect]
     Active Substance: CYSTEAMINE BITARTRATE
     Indication: CYSTINOSIS
     Dosage: 1350 MG BID
     Dates: start: 201602

REACTIONS (3)
  - Malnutrition [Fatal]
  - Organ failure [Fatal]
  - Kidney transplant rejection [Fatal]
